FAERS Safety Report 25119659 (Version 2)
Quarter: 2025Q2

REPORT INFORMATION
  Report Type: Spontaneous
  Country: JP (occurrence: JP)
  Receive Date: 20250325
  Receipt Date: 20250418
  Transmission Date: 20250717
  Serious: Yes (Death, Other)
  Sender: ARGENX BVBA
  Company Number: JP-ARGENX-2025-ARGX-JP003629

PATIENT

DRUGS (3)
  1. VYVGART [Suspect]
     Active Substance: EFGARTIGIMOD ALFA-FCAB
     Indication: Immune thrombocytopenia
     Route: 042
     Dates: start: 20250306, end: 20250317
  2. ELTROMBOPAG OLAMINE [Concomitant]
     Active Substance: ELTROMBOPAG OLAMINE
     Indication: Product used for unknown indication
     Route: 065
  3. FOSTAMATINIB [Concomitant]
     Active Substance: FOSTAMATINIB
     Indication: Product used for unknown indication
     Route: 065

REACTIONS (1)
  - Systemic candida [Fatal]
